FAERS Safety Report 4356794-7 (Version None)
Quarter: 2004Q2

REPORT INFORMATION
  Report Type: 
  Country: None (occurrence: None)
  Receive Date: 20040507
  Receipt Date: 20040423
  Transmission Date: 20050107
  Serious: Yes (Disabling)
  Sender: FDA-Public Use
  Company Number: 236503

PATIENT
  Age: 37 Year
  Sex: Female

DRUGS (1)
  1. NORDITROPIN SIMPLEXX [Suspect]
     Indication: ILL-DEFINED DISORDER

REACTIONS (2)
  - ARTHRALGIA [None]
  - MYALGIA [None]
